FAERS Safety Report 13783234 (Version 2)
Quarter: 2017Q3

REPORT INFORMATION
  Report Type: Spontaneous
  Country: BR (occurrence: BR)
  Receive Date: 20170724
  Receipt Date: 20170811
  Transmission Date: 20171127
  Serious: Yes (Hospitalization, Other)
  Sender: FDA-Public Use
  Company Number: BR-GLAXOSMITHKLINE-BR2017GSK112978

PATIENT
  Age: 1 Year
  Sex: Female
  Weight: 9.3 kg

DRUGS (3)
  1. ZINNAT [Suspect]
     Active Substance: CEFUROXIME AXETIL
     Indication: COUGH
     Dosage: 2 ML, BID
     Dates: start: 20170710
  2. ZINNAT [Suspect]
     Active Substance: CEFUROXIME AXETIL
     Indication: RHINITIS
  3. ZINNAT [Suspect]
     Active Substance: CEFUROXIME AXETIL
     Indication: CATARRH

REACTIONS (12)
  - Pneumonia [Not Recovered/Not Resolved]
  - Dyspnoea [Unknown]
  - Eye irritation [Unknown]
  - Hyperventilation [Unknown]
  - Rash macular [Unknown]
  - Vomiting [Unknown]
  - Skin discolouration [Unknown]
  - Product quality issue [Unknown]
  - Condition aggravated [Unknown]
  - Oral disorder [Unknown]
  - Drug ineffective [Unknown]
  - Respiratory disorder [Unknown]

NARRATIVE: CASE EVENT DATE: 20170717
